FAERS Safety Report 6325954-8 (Version None)
Quarter: 2009Q3

REPORT INFORMATION
  Report Type: 
  Country: None (occurrence: None)
  Receive Date: 20090818
  Receipt Date: 20090427
  Transmission Date: 20100115
  Serious: No
  Sender: FDA-Public Use
  Company Number: WAES 0904USA01141

PATIENT
  Sex: Male

DRUGS (3)
  1. JANUVIA [Suspect]
     Dosage: 100 MG/DAILY/PO : 200 MG/DAILY/PO
     Route: 048
     Dates: start: 20090325, end: 20090407
  2. JANUVIA [Suspect]
     Dosage: 100 MG/DAILY/PO : 200 MG/DAILY/PO
     Route: 048
     Dates: start: 20090408, end: 20090408
  3. JANUVIA [Suspect]
     Dosage: 100 MG/DAILY/PO : 200 MG/DAILY/PO
     Route: 048
     Dates: start: 20090409, end: 20090601

REACTIONS (3)
  - ACCIDENTAL OVERDOSE [None]
  - DRUG INEFFECTIVE [None]
  - RENAL DISORDER [None]
